FAERS Safety Report 25282163 (Version 1)
Quarter: 2025Q2

REPORT INFORMATION
  Report Type: Spontaneous
  Country: US (occurrence: US)
  Receive Date: 20250508
  Receipt Date: 20250508
  Transmission Date: 20250716
  Serious: No
  Sender: AMGEN
  Company Number: US-AMGEN-USASP2025089960

PATIENT
  Age: 86 Year
  Sex: Female

DRUGS (1)
  1. BEVACIZUMAB [Suspect]
     Active Substance: BEVACIZUMAB
     Indication: Retinal aneurysm
     Dosage: 1.25 MILLIGRAM//0.05 ML, QMO, THREE INJECTIONS, FOR THREE CONSECUTIVE MONTHS

REACTIONS (4)
  - Retinal depigmentation [Unknown]
  - Anterior capsule contraction [Unknown]
  - Drug effective for unapproved indication [Unknown]
  - Off label use [Unknown]
